FAERS Safety Report 4529637-6 (Version None)
Quarter: 2004Q4

REPORT INFORMATION
  Report Type: 
  Country: None (occurrence: None)
  Receive Date: 20041214
  Receipt Date: 20041129
  Transmission Date: 20050328
  Serious: Yes (Hospitalization)
  Sender: FDA-Public Use
  Company Number: 2004-123138-NL

PATIENT
  Age: 53 Year
  Sex: Male

DRUGS (7)
  1. MIRTAZAPINE [Suspect]
     Indication: DEPRESSION
     Dosage: 30 G QD
  2. MIRTAZAPINE [Suspect]
     Indication: DEPRESSION
     Dosage: 45 MG QD
  3. CLONIDINE [Suspect]
     Indication: HYPERTENSION
     Dosage: 0.1 MG, EVERY 8 HOURS
  4. CLONIDINE [Suspect]
     Indication: HYPERTENSION
     Dosage: 0.3 MG TOPICAL, PATCH EVERY 8 HOURS
     Route: 061
  5. LISINOPRIL [Concomitant]
  6. METOPROLOL [Concomitant]
  7. TEMAZEPAM [Concomitant]

REACTIONS (5)
  - ALCOHOLISM [None]
  - CONDITION AGGRAVATED [None]
  - DEPRESSION [None]
  - DRUG INTERACTION [None]
  - HYPERTENSION [None]
